FAERS Safety Report 4420721-4 (Version None)
Quarter: 2004Q3

REPORT INFORMATION
  Report Type: 
  Country: None (occurrence: None)
  Receive Date: 20040809
  Receipt Date: 20040505
  Transmission Date: 20050211
  Serious: No
  Sender: FDA-Public Use
  Company Number: US-GLAXOSMITHKLINE-A0509630A

PATIENT
  Age: 26 Year
  Sex: Female
  Weight: 68.2 kg

DRUGS (3)
  1. PAXIL [Suspect]
     Indication: DEPRESSION
     Dosage: 20MG PER DAY
     Route: 048
     Dates: start: 20040325, end: 20040510
  2. BIRTH CONTROL PILLS [Concomitant]
  3. FLONASE [Concomitant]

REACTIONS (4)
  - ANORGASMIA [None]
  - ELECTRIC SHOCK [None]
  - PARAESTHESIA [None]
  - SENSORY DISTURBANCE [None]
